FAERS Safety Report 20521614 (Version 1)
Quarter: 2022Q1

REPORT INFORMATION
  Report Type: Spontaneous
  Country: DE (occurrence: DE)
  Receive Date: 20220226
  Receipt Date: 20220226
  Transmission Date: 20220423
  Serious: Yes (Other)
  Sender: FDA-Public Use
  Company Number: DE-AMGEN-DEUSP2022010479

PATIENT
  Age: 5 Week
  Sex: Female
  Weight: 1.03 kg

DRUGS (1)
  1. ARANESP [Suspect]
     Active Substance: DARBEPOETIN ALFA
     Indication: Erythropoiesis abnormal
     Dosage: 8 MICROGRAM, QWK
     Route: 058
     Dates: start: 20211206, end: 20220103

REACTIONS (3)
  - Rash erythematous [Recovering/Resolving]
  - Cholestasis [Recovering/Resolving]
  - Off label use [Unknown]

NARRATIVE: CASE EVENT DATE: 20211206
